FAERS Safety Report 4549514-4 (Version None)
Quarter: 2005Q1

REPORT INFORMATION
  Report Type: 
  Country: None (occurrence: None)
  Receive Date: 20050111
  Receipt Date: 20030423
  Transmission Date: 20050727
  Serious: Yes (Congenital Anomaly)
  Sender: FDA-Public Use
  Company Number: US-ROCHE-336694

PATIENT

DRUGS (3)
  1. ACCUTANE [Suspect]
     Indication: DRUG USE FOR UNKNOWN INDICATION
     Dates: start: 19990215
  2. ACCUTANE [Suspect]
     Dates: start: 20001113, end: 20010412
  3. ORAL CONTRACEPTIVE NOS [Concomitant]
     Dates: start: 20000115

REACTIONS (5)
  - CONGENITAL ANOMALY [None]
  - DEVELOPMENTAL DELAY [None]
  - DRUG EXPOSURE DURING PREGNANCY [None]
  - LIVE BIRTH [None]
  - SKULL MALFORMATION [None]
